FAERS Safety Report 13096021 (Version 1)
Quarter: 2017Q1

REPORT INFORMATION
  Report Type: Spontaneous
  Country: IN (occurrence: IN)
  Receive Date: 20170109
  Receipt Date: 20170109
  Transmission Date: 20170428
  Serious: Yes (Life-Threatening)
  Sender: FDA-Public Use
  Company Number: IN-AXELLIA-001025

PATIENT
  Age: 41 Year
  Sex: Male

DRUGS (1)
  1. VANCOMYCIN [Suspect]
     Active Substance: VANCOMYCIN
     Indication: ENDOCARDITIS BACTERIAL
     Dosage: 30MG/KG IN TWO DIVIDED DOSES
     Route: 042

REACTIONS (2)
  - Treatment failure [Unknown]
  - Drug resistance [Recovered/Resolved]
